FAERS Safety Report 18210228 (Version 1)
Quarter: 2020Q3

REPORT INFORMATION
  Report Type: Spontaneous
  Country: US (occurrence: US)
  Receive Date: 20200829
  Receipt Date: 20200829
  Transmission Date: 20201103
  Serious: No
  Sender: FDA-Public Use
  Company Number: US-INCYTE CORPORATION-2020IN008161

PATIENT

DRUGS (1)
  1. JAKAFI [Suspect]
     Active Substance: RUXOLITINIB
     Dosage: 15 MILLIGRAM, OTHER
     Route: 048
     Dates: start: 201910

REACTIONS (7)
  - Blood glucose increased [Unknown]
  - Haemoglobin decreased [Unknown]
  - Dyspnoea [Unknown]
  - Blood potassium increased [Unknown]
  - Fatigue [Unknown]
  - Red cell distribution width decreased [Unknown]
  - Dizziness [Unknown]
